FAERS Safety Report 9943889 (Version 2)
Quarter: 2014Q1

REPORT INFORMATION
  Report Type: Report from Study
  Country: US (occurrence: US)
  Receive Date: 20140303
  Receipt Date: 20140303
  Transmission Date: 20141002
  Serious: Yes (Hospitalization)
  Sender: FDA-Public Use
  Company Number: US-ABBVIE-13P-163-1040775-00

PATIENT
  Age: 66 Year
  Sex: Male

DRUGS (5)
  1. HUMIRA [Suspect]
     Indication: RHEUMATOID ARTHRITIS
     Dates: end: 20120905
  2. DIOVAN [Concomitant]
     Indication: PRODUCT USED FOR UNKNOWN INDICATION
  3. CARTIA [Concomitant]
     Indication: PRODUCT USED FOR UNKNOWN INDICATION
  4. CELEBREX [Concomitant]
     Indication: RHEUMATOID ARTHRITIS
  5. WARFARIN [Concomitant]
     Indication: ATRIAL FLUTTER
     Dosage: 5 MG FOR 4 DAYS AND 2.5 MG FOR 3 DAYS

REACTIONS (5)
  - Knee arthroplasty [Recovered/Resolved]
  - Incision site infection [Unknown]
  - Staphylococcal infection [Unknown]
  - Arthropathy [Unknown]
  - Rheumatoid arthritis [Unknown]
